FAERS Safety Report 11194566 (Version 1)
Quarter: 2015Q2

REPORT INFORMATION
  Report Type: Report from Study
  Country: CA (occurrence: CA)
  Receive Date: 20150616
  Receipt Date: 20150616
  Transmission Date: 20150821
  Serious: Yes (Death)
  Sender: FDA-Public Use
  Company Number: PHHY2015CA066256

PATIENT
  Age: 62 Year
  Sex: Female

DRUGS (2)
  1. SANDOSTATIN LAR DEPOT [Suspect]
     Active Substance: OCTREOTIDE ACETATE
     Indication: CARCINOID TUMOUR OF THE APPENDIX
     Dosage: 20 MG, QW4
     Route: 030
     Dates: start: 20150520, end: 20150520
  2. SANDOSTATIN [Suspect]
     Active Substance: OCTREOTIDE ACETATE
     Indication: CARCINOID TUMOUR OF THE APPENDIX
     Dosage: 300 UG, TID
     Route: 058
     Dates: start: 20150507

REACTIONS (6)
  - Speech disorder [Unknown]
  - Immobile [Unknown]
  - Death [Fatal]
  - Malaise [Unknown]
  - Hypersomnia [Unknown]
  - Hearing disability [Unknown]

NARRATIVE: CASE EVENT DATE: 20150610
